FAERS Safety Report 6775828-3 (Version None)
Quarter: 2010Q2

REPORT INFORMATION
  Report Type: 
  Country: None (occurrence: None)
  Receive Date: 20100615
  Receipt Date: 20100609
  Transmission Date: 20101027
  Serious: Yes (Death, Other)
  Sender: FDA-Public Use
  Company Number: 010580

PATIENT
  Sex: Male
  Weight: 52.3 kg

DRUGS (4)
  1. CERTOLIZUMAB PEGOL (CERTOLIZUMAB PEGOL) [Suspect]
     Indication: CROHN'S DISEASE
     Dosage: 400 MG 1X/MONTH SUBCUTANEOUS
     Route: 058
     Dates: start: 20060101, end: 20060101
  2. INFLIXIMAB (INFLIXIMAB) [Suspect]
     Indication: CROHN'S DISEASE
     Dosage: 400 MG  1X/2 MONTHS INTRAVENOUS (NOT OTHERWISE SPECIFIED)
     Route: 042
     Dates: start: 20040101, end: 20040101
  3. ADALIMUMAB (ADALIMUMAB) [Suspect]
     Dosage: SUBCUTANEOUS
     Route: 058
     Dates: start: 20080101, end: 20080501
  4. AZATHIOPRIN [Concomitant]

REACTIONS (2)
  - MULTI-ORGAN FAILURE [None]
  - NEOPLASM MALIGNANT [None]
